FAERS Safety Report 6436828-6 (Version None)
Quarter: 2009Q4

REPORT INFORMATION
  Report Type: 
  Country: None (occurrence: None)
  Receive Date: 20091109
  Receipt Date: 20091026
  Transmission Date: 20100525
  Serious: Yes (Hospitalization)
  Sender: FDA-Public Use
  Company Number: 1-20423782

PATIENT
  Age: 33 Year
  Sex: Female
  Weight: 55.7924 kg

DRUGS (6)
  1. FENTANYL-50 [Suspect]
     Indication: PAIN
     Dosage: 50 MCG/HR EVERY 72 HR, TRANSDERMAL
     Route: 062
     Dates: start: 20091006, end: 20091013
  2. SINGULAIR [Concomitant]
  3. ADVAIR DISKUS (FLUTICASONE AND SALMETEROL) [Concomitant]
  4. DICLOFENAC SODIUM [Concomitant]
  5. KLONOPIN [Concomitant]
  6. KEPPRA [Concomitant]

REACTIONS (10)
  - APPLICATION SITE ERYTHEMA [None]
  - APPLICATION SITE SCAB [None]
  - APPLICATION SITE SWELLING [None]
  - HAEMORRHAGE [None]
  - MYOCLONUS [None]
  - PAIN [None]
  - PRODUCT SUBSTITUTION ISSUE [None]
  - SKIN BURNING SENSATION [None]
  - SKIN DISCOLOURATION [None]
  - SKIN WRINKLING [None]
